FAERS Safety Report 10430984 (Version 4)
Quarter: 2017Q2

REPORT INFORMATION
  Report Type: Spontaneous
  Country: JP (occurrence: JP)
  Receive Date: 20140904
  Receipt Date: 20170630
  Transmission Date: 20170829
  Serious: Yes (Death, Hospitalization, Other)
  Sender: FDA-Public Use
  Company Number: PHHY2014JP110486

PATIENT
  Age: 53 Year
  Sex: Female

DRUGS (2)
  1. RINDERON V [Concomitant]
     Active Substance: BETAMETHASONE VALERATE
     Indication: MULTIPLE SCLEROSIS RELAPSE
     Dosage: 200 MG, QD
     Route: 065
  2. GILENYA [Suspect]
     Active Substance: FINGOLIMOD HYDROCHLORIDE
     Indication: MULTIPLE SCLEROSIS
     Dosage: 0.5 MG, UNK
     Route: 048

REACTIONS (13)
  - Influenza [Fatal]
  - Pelvic fracture [Recovering/Resolving]
  - Multiple sclerosis relapse [Recovering/Resolving]
  - Retroperitoneal haematoma [Recovering/Resolving]
  - Pyrexia [Recovering/Resolving]
  - Sepsis [Recovering/Resolving]
  - Road traffic accident [Not Recovered/Not Resolved]
  - Periodontal disease [Unknown]
  - Dental caries [Unknown]
  - Endocarditis bacterial [Recovering/Resolving]
  - Bladder injury [Recovering/Resolving]
  - Shock haemorrhagic [Recovering/Resolving]
  - Depressed level of consciousness [Recovering/Resolving]
